FAERS Safety Report 6307892-X (Version None)
Quarter: 2009Q3

REPORT INFORMATION
  Report Type: 
  Country: None (occurrence: None)
  Receive Date: 20090810
  Receipt Date: 20090803
  Transmission Date: 20100115
  Serious: Yes (Other)
  Sender: FDA-Public Use
  Company Number: 1000007945

PATIENT
  Age: 26 Year
  Sex: Female

DRUGS (2)
  1. LEXAPRO [Suspect]
     Indication: DEPRESSION
     Dosage: 10 MG (10 MG, 1 IN 1 D), PER ORAL
     Route: 048
     Dates: start: 20040101
  2. YASMIN [Concomitant]

REACTIONS (5)
  - COLITIS ULCERATIVE [None]
  - CONVULSION [None]
  - FALL [None]
  - MALAISE [None]
  - UNRESPONSIVE TO STIMULI [None]
